FAERS Safety Report 11912450 (Version 3)
Quarter: 2016Q1

REPORT INFORMATION
  Report Type: Spontaneous
  Country: US (occurrence: US)
  Receive Date: 20160113
  Receipt Date: 20160318
  Transmission Date: 20160526
  Serious: No
  Sender: FDA-Public Use
  Company Number: US-009507513-1601USA003639

PATIENT
  Age: 16 Year
  Sex: Female
  Weight: 55.33 kg

DRUGS (3)
  1. TYLENOL [Concomitant]
     Active Substance: ACETAMINOPHEN
     Dosage: UNK
  2. IBUPROFEN. [Concomitant]
     Active Substance: IBUPROFEN
     Dosage: UNK
  3. NEXPLANON [Suspect]
     Active Substance: ETONOGESTREL
     Indication: CONTRACEPTION
     Dosage: 1 IMPLANT/ 3 YEARS
     Route: 059
     Dates: start: 20140514

REACTIONS (9)
  - Amenorrhoea [Recovered/Resolved]
  - Polymenorrhoea [Recovered/Resolved]
  - Limb discomfort [Unknown]
  - Menorrhagia [Unknown]
  - Menstruation irregular [Unknown]
  - Product quality issue [Unknown]
  - Hypoaesthesia [Unknown]
  - Hypersensitivity [Unknown]
  - Implant site pain [Unknown]

NARRATIVE: CASE EVENT DATE: 201411
